FAERS Safety Report 16772245 (Version 1)
Quarter: 2019Q3

REPORT INFORMATION
  Report Type: Spontaneous
  Country: CA (occurrence: CA)
  Receive Date: 20190904
  Receipt Date: 20190904
  Transmission Date: 20191005
  Serious: Yes (Other)
  Sender: FDA-Public Use
  Company Number: CA-PFIZER INC-2019375420

PATIENT
  Age: 34 Year
  Sex: Female

DRUGS (2)
  1. ZOLEDRONIC ACID [Suspect]
     Active Substance: ZOLEDRONIC ACID
     Dosage: UNK
     Route: 042
  2. TARO-ZOLEDRONIC ACID [Suspect]
     Active Substance: ZOLEDRONIC ACID
     Dosage: 5 MG, UNK [1 EVERY 1 YEAR(S)]
     Route: 042

REACTIONS (4)
  - Thoracic vertebral fracture [Unknown]
  - Ankle fracture [Unknown]
  - Fall [Unknown]
  - Drug ineffective [Unknown]
